FAERS Safety Report 15094803 (Version 1)
Quarter: 2018Q3

REPORT INFORMATION
  Report Type: Spontaneous
  Country: US (occurrence: US)
  Receive Date: 20180701
  Receipt Date: 20180701
  Transmission Date: 20181010
  Serious: No
  Sender: FDA-Public Use
  Company Number: US-JNJFOC-20180619707

PATIENT
  Sex: Female

DRUGS (1)
  1. STELARA [Suspect]
     Active Substance: USTEKINUMAB
     Indication: CROHN^S DISEASE
     Route: 042
     Dates: start: 20180525

REACTIONS (7)
  - Peripheral swelling [Unknown]
  - Incorrect dose administered [Unknown]
  - Musculoskeletal stiffness [Recovered/Resolved]
  - Neck pain [Unknown]
  - Off label use [Unknown]
  - Paraesthesia [Not Recovered/Not Resolved]
  - Arthralgia [Not Recovered/Not Resolved]

NARRATIVE: CASE EVENT DATE: 201805
